FAERS Safety Report 12417624 (Version 1)
Quarter: 2016Q2

REPORT INFORMATION
  Report Type: Spontaneous
  Country: VE (occurrence: VE)
  Receive Date: 20160530
  Receipt Date: 20160530
  Transmission Date: 20160815
  Serious: Yes (Hospitalization)
  Sender: FDA-Public Use
  Company Number: PHHY2016VE072814

PATIENT
  Age: 66 Year
  Sex: Female

DRUGS (5)
  1. FORADIL [Suspect]
     Active Substance: FORMOTEROL FUMARATE
     Indication: PULMONARY HYPERTENSION
  2. MIFLONIDE [Suspect]
     Active Substance: BUDESONIDE
     Indication: PULMONARY HYPERTENSION
  3. MIFLONIDE [Suspect]
     Active Substance: BUDESONIDE
     Indication: CHRONIC OBSTRUCTIVE PULMONARY DISEASE
     Dosage: 800 UG, QD
     Route: 055
     Dates: start: 2007
  4. FORADIL [Suspect]
     Active Substance: FORMOTEROL FUMARATE
     Indication: CHRONIC OBSTRUCTIVE PULMONARY DISEASE
     Dosage: 24 UG, QD
     Route: 055
     Dates: start: 2007
  5. ALOVENT//IPRATROPIUM BROMIDE [Concomitant]
     Indication: CHRONIC OBSTRUCTIVE PULMONARY DISEASE
     Dosage: 160 OT, QD
     Route: 065
     Dates: start: 2007

REACTIONS (5)
  - Shock [Not Recovered/Not Resolved]
  - Pain [Not Recovered/Not Resolved]
  - Heart rate increased [Not Recovered/Not Resolved]
  - Chronic obstructive pulmonary disease [Not Recovered/Not Resolved]
  - Oxygen consumption decreased [Not Recovered/Not Resolved]

NARRATIVE: CASE EVENT DATE: 201605
